FAERS Safety Report 18656896 (Version 1)
Quarter: 2020Q4

REPORT INFORMATION
  Report Type: Spontaneous
  Country: US (occurrence: US)
  Receive Date: 20201224
  Receipt Date: 20201224
  Transmission Date: 20210114
  Serious: Yes (Hospitalization, Other)
  Sender: FDA-Public Use
  Company Number: US-SA-2020SA360604

PATIENT

DRUGS (2)
  1. DIPHENHYDRAMINE. [Suspect]
     Active Substance: DIPHENHYDRAMINE
     Indication: SUICIDE ATTEMPT
     Dosage: 29 CAPSULES CONTAINING 50 MG OF DIPHENHYDRAMINE PER CAPSULE
  2. ALCOHOL. [Suspect]
     Active Substance: ALCOHOL
     Dosage: 100 ML VODKA

REACTIONS (14)
  - Compartment syndrome [Recovering/Resolving]
  - Hypoaesthesia [Recovering/Resolving]
  - Slow response to stimuli [Recovering/Resolving]
  - Pain in extremity [Recovering/Resolving]
  - Livedo reticularis [Recovering/Resolving]
  - Muscular weakness [Recovering/Resolving]
  - Tachycardia [Recovering/Resolving]
  - Rhabdomyolysis [Unknown]
  - Joint range of motion decreased [Recovering/Resolving]
  - Pulse absent [Recovering/Resolving]
  - Sensory loss [Recovered/Resolved]
  - Overdose [Recovering/Resolving]
  - Paraesthesia [Recovering/Resolving]
  - Renal failure [Recovering/Resolving]
